FAERS Safety Report 9442146 (Version 2)
Quarter: 2013Q3

REPORT INFORMATION
  Report Type: Spontaneous
  Country: US (occurrence: US)
  Receive Date: 20130806
  Receipt Date: 20130822
  Transmission Date: 20140515
  Serious: No
  Sender: FDA-Public Use
  Company Number: PHEH2013US016348

PATIENT
  Age: 75 Year
  Sex: Female

DRUGS (3)
  1. FANAPT [Suspect]
     Indication: BIPOLAR DISORDER
     Dosage: 2 MG, BID
     Route: 048
     Dates: start: 20130729
  2. FANAPT [Suspect]
     Dosage: 4 MG, BID (4 MG IN THE MORNING AND 4MG IN THE AFTERNOON)
  3. FANAPT [Suspect]
     Dosage: 6 MG, BID (6 MG IN THE MORNING AND 6MG IN THE AFTERNOON)

REACTIONS (8)
  - Memory impairment [Recovered/Resolved]
  - Dizziness [Recovered/Resolved]
  - Dry mouth [Recovered/Resolved]
  - Gait disturbance [Recovered/Resolved]
  - Weight increased [Recovered/Resolved]
  - Somnolence [Recovered/Resolved]
  - Vertigo [Unknown]
  - Tremor [Unknown]
